FAERS Safety Report 15090934 (Version 1)
Quarter: 2018Q2

REPORT INFORMATION
  Report Type: Spontaneous
  Country: JP (occurrence: JP)
  Receive Date: 20180629
  Receipt Date: 20180629
  Transmission Date: 20180711
  Serious: Yes (Other)
  Sender: FDA-Public Use
  Company Number: JP-ELI_LILLY_AND_COMPANY-JP201710001321

PATIENT
  Age: 61 Year
  Sex: Male

DRUGS (1)
  1. ERBITUX [Suspect]
     Active Substance: CETUXIMAB
     Indication: HEAD AND NECK CANCER
     Dosage: UNK, UNKNOWN
     Route: 041
     Dates: start: 20150408, end: 20150601

REACTIONS (15)
  - Decreased appetite [Recovered/Resolved]
  - Aspartate aminotransferase increased [Recovered/Resolved]
  - Dry mouth [Not Recovered/Not Resolved]
  - Radiation skin injury [Recovering/Resolving]
  - Paronychia [Recovering/Resolving]
  - Mucosal infection [Recovered/Resolved]
  - Diarrhoea [Recovered/Resolved]
  - Dysphagia [Unknown]
  - Hyperkalaemia [Recovered/Resolved]
  - Pharyngeal inflammation [Recovering/Resolving]
  - Alanine aminotransferase increased [Recovered/Resolved]
  - Anaemia [Recovered/Resolved]
  - Dermatitis acneiform [Recovering/Resolving]
  - Nausea [Recovered/Resolved]
  - Stomatitis [Recovering/Resolving]

NARRATIVE: CASE EVENT DATE: 20150408
